FAERS Safety Report 5343899-7 (Version None)
Quarter: 2007Q2

REPORT INFORMATION
  Report Type: 
  Country: None (occurrence: None)
  Receive Date: 20070531
  Receipt Date: 20070531
  Transmission Date: 20071010
  Serious: Yes (Life-Threatening)
  Sender: FDA-Public Use
  Company Number: None

PATIENT
  Age: 47 Year
  Sex: Female
  Weight: 48.9885 kg

DRUGS (4)
  1. ALEVE [Suspect]
     Indication: PAIN
     Dosage: 400 MG DAILY ORALLY
     Route: 048
     Dates: start: 20070519, end: 20070520
  2. SYNTHROID [Concomitant]
  3. CYTOMEL [Concomitant]
  4. DYAZIDE [Concomitant]

REACTIONS (1)
  - SYNCOPE [None]
